FAERS Safety Report 8448383-X (Version None)
Quarter: 2012Q2

REPORT INFORMATION
  Report Type: 
  Country: None (occurrence: None)
  Receive Date: 20120612
  Receipt Date: 20120601
  Transmission Date: 20120825
  Serious: Yes (Other)
  Sender: FDA-Public Use
  Company Number: JP-2012-15309

PATIENT
  Age: 61 Year
  Sex: Male

DRUGS (4)
  1. CLOPIDOGREL BISULFATE [Concomitant]
  2. PLETAL [Suspect]
     Indication: VERTEBRAL ARTERY OCCLUSION
     Dosage: , ORAL, 200 MG MILLIGRAM(S), DAILY DOSE, ORAL
     Route: 048
     Dates: start: 20090219
  3. PLETAL [Suspect]
     Indication: VERTEBRAL ARTERY STENOSIS
     Dosage: , ORAL, 200 MG MILLIGRAM(S), DAILY DOSE, ORAL
     Route: 048
     Dates: start: 20090219
  4. ASPIRIN [Suspect]
     Dosage: 100 MG MILLIGRAM(S), DAILY DOSE, ORAL
     Route: 048
     Dates: start: 20090219

REACTIONS (7)
  - GASTROINTESTINAL ULCER HAEMORRHAGE [None]
  - MELAENA [None]
  - ANAEMIA [None]
  - CHEST PAIN [None]
  - OXYGEN SATURATION DECREASED [None]
  - PULMONARY EMBOLISM [None]
  - BLOOD PRESSURE DECREASED [None]
